FAERS Safety Report 5788417-4 (Version None)
Quarter: 2008Q2

REPORT INFORMATION
  Report Type: 
  Country: None (occurrence: None)
  Receive Date: 20080623
  Receipt Date: 20080609
  Transmission Date: 20081010
  Serious: Yes (Death)
  Sender: FDA-Public Use
  Company Number: 2008AL005110

PATIENT
  Age: 73 Year
  Sex: Male

DRUGS (1)
  1. DIGOXIN [Suspect]
     Dosage: .125MG, PO, DAILY
     Route: 048

REACTIONS (3)
  - CARDIAC FAILURE [None]
  - CONGESTIVE CARDIOMYOPATHY [None]
  - LETHARGY [None]
